FAERS Safety Report 15656112 (Version 1)
Quarter: 2018Q4

REPORT INFORMATION
  Report Type: Spontaneous
  Country: FR (occurrence: FR)
  Receive Date: 20181126
  Receipt Date: 20181126
  Transmission Date: 20190205
  Serious: Yes (Other)
  Sender: FDA-Public Use
  Company Number: FR-PFIZER INC-2018070139

PATIENT
  Age: 74 Year
  Sex: Female

DRUGS (2)
  1. LAMALINE /00764901/ [Concomitant]
     Active Substance: ACETAMINOPHEN\BELLADONNA LEAF\CAFFEINE\OPIUM
     Indication: SCIATICA
     Dosage: UNK, 1X/DAY
     Dates: start: 20180115
  2. FELDENE [Suspect]
     Active Substance: PIROXICAM
     Indication: SCIATICA
     Dosage: 20 MG, 1X/DAY
     Route: 051
     Dates: start: 20180115, end: 20180122

REACTIONS (14)
  - Peripheral swelling [Not Recovered/Not Resolved]
  - Emphysema [Unknown]
  - Brain natriuretic peptide increased [Unknown]
  - Mobility decreased [Unknown]
  - Ligament sprain [Recovered/Resolved]
  - Drug ineffective for unapproved indication [Unknown]
  - Gait disturbance [Unknown]
  - Oedema [Unknown]
  - Feeling abnormal [Unknown]
  - Fatigue [Not Recovered/Not Resolved]
  - Dyspnoea exertional [Not Recovered/Not Resolved]
  - Muscle spasms [Unknown]
  - Dyspnoea [Unknown]
  - Tooth disorder [Unknown]

NARRATIVE: CASE EVENT DATE: 20180213
